FAERS Safety Report 12690396 (Version 1)
Quarter: 2016Q3

REPORT INFORMATION
  Report Type: Spontaneous
  Country: US (occurrence: US)
  Receive Date: 20160826
  Receipt Date: 20160826
  Transmission Date: 20161109
  Serious: No
  Sender: FDA-Public Use
  Company Number: US-FRI-1000084236

PATIENT
  Sex: Female

DRUGS (2)
  1. LEXAPRO [Suspect]
     Active Substance: ESCITALOPRAM OXALATE
     Dates: start: 20160420
  2. LEXAPRO [Suspect]
     Active Substance: ESCITALOPRAM OXALATE
     Dates: end: 20160420

REACTIONS (7)
  - Dry mouth [Unknown]
  - Intentional product misuse [Unknown]
  - Feeling abnormal [Unknown]
  - Paraesthesia [Unknown]
  - Drug dose omission [Unknown]
  - Dysgeusia [Unknown]
  - Fatigue [Unknown]

NARRATIVE: CASE EVENT DATE: 20160420
